FAERS Safety Report 4609544-0 (Version None)
Quarter: 2005Q1

REPORT INFORMATION
  Report Type: 
  Country: None (occurrence: None)
  Receive Date: 20050314
  Receipt Date: 20050314
  Transmission Date: 20050727
  Serious: Yes (Other)
  Sender: FDA-Public Use
  Company Number: None

PATIENT
  Age: 4 Year
  Sex: Male
  Weight: 15.4223 kg

DRUGS (1)
  1. ELIDEL [Suspect]
     Indication: ECZEMA
     Dosage: AS NEEDED   DAILY    TOPICAL
     Route: 061
     Dates: start: 20031118, end: 20050216

REACTIONS (2)
  - IMMUNE SYSTEM DISORDER [None]
  - MOLLUSCUM CONTAGIOSUM [None]
